FAERS Safety Report 21184967 (Version 1)
Quarter: 2022Q3

REPORT INFORMATION
  Report Type: Spontaneous
  Country: FR (occurrence: FR)
  Receive Date: 20220808
  Receipt Date: 20220808
  Transmission Date: 20221027
  Serious: Yes (Other)
  Sender: FDA-Public Use
  Company Number: None

PATIENT
  Age: 66 Year
  Sex: Female

DRUGS (2)
  1. FLUOROURACIL [Suspect]
     Active Substance: FLUOROURACIL
     Indication: Breast cancer
     Dosage: 2 CYCLES OF 5 DAYS
  2. VINORELBINE [Suspect]
     Active Substance: VINORELBINE TARTRATE
     Indication: Breast cancer
     Dosage: 2 CYCLES D1- D6

REACTIONS (4)
  - Cutaneous lupus erythematosus [Recovered/Resolved]
  - Atrophy [Unknown]
  - Telangiectasia [Unknown]
  - Skin toxicity [Unknown]
